FAERS Safety Report 4575739-8 (Version None)
Quarter: 2005Q1

REPORT INFORMATION
  Report Type: 
  Country: None (occurrence: None)
  Receive Date: 20050209
  Receipt Date: 20050127
  Transmission Date: 20050727
  Serious: Yes (Hospitalization)
  Sender: FDA-Public Use
  Company Number: US-GLAXOSMITHKLINE-A0542540A

PATIENT
  Age: 27 Year
  Sex: Female

DRUGS (1)
  1. GOODY'S EXTRA STRENGTH HEADACHE POWDER [Suspect]
     Indication: DRUG USE FOR UNKNOWN INDICATION
     Route: 048
     Dates: start: 19990101, end: 20000101

REACTIONS (5)
  - DEPENDENCE [None]
  - DRUG DEPENDENCE [None]
  - HAEMOPTYSIS [None]
  - INTENTIONAL MISUSE [None]
  - OESOPHAGEAL RUPTURE [None]
